FAERS Safety Report 6209734-X (Version None)
Quarter: 2009Q2

REPORT INFORMATION
  Report Type: 
  Country: None (occurrence: None)
  Receive Date: 20090527
  Receipt Date: 20090520
  Transmission Date: 20091009
  Serious: Yes (Other)
  Sender: FDA-Public Use
  Company Number: 2009SP008084

PATIENT
  Age: 57 Year
  Sex: Male
  Weight: 65 kg

DRUGS (1)
  1. TEMODAL [Suspect]
     Indication: GLIOBLASTOMA
     Dosage: 130 MG; QD; PO
     Route: 048
     Dates: start: 20090316, end: 20090415

REACTIONS (1)
  - ANGINA UNSTABLE [None]
